FAERS Safety Report 4342036-5 (Version None)
Quarter: 2004Q2

REPORT INFORMATION
  Report Type: 
  Country: None (occurrence: None)
  Receive Date: 20040415
  Receipt Date: 20040402
  Transmission Date: 20050107
  Serious: Yes (Other)
  Sender: FDA-Public Use
  Company Number: 2004008255

PATIENT
  Sex: Female
  Weight: 63.5036 kg

DRUGS (1)
  1. ZOLOFT [Suspect]
     Indication: OBSESSIVE-COMPULSIVE DISORDER
     Dosage: 100 MG (DAILY), ORAL
     Route: 048
     Dates: start: 20020101

REACTIONS (16)
  - AGGRESSION [None]
  - AMENORRHOEA [None]
  - ANXIETY [None]
  - ARTHROPATHY [None]
  - DRUG DEPENDENCE [None]
  - DRUG WITHDRAWAL SYNDROME [None]
  - FATIGUE [None]
  - INFLUENZA [None]
  - INSOMNIA [None]
  - PAIN [None]
  - SENSATION OF BLOCK IN EAR [None]
  - SEXUAL DYSFUNCTION [None]
  - SUICIDAL IDEATION [None]
  - TINNITUS [None]
  - VERTIGO [None]
  - VOMITING [None]
